FAERS Safety Report 17298979 (Version 1)
Quarter: 2020Q1

REPORT INFORMATION
  Report Type: Spontaneous
  Country: US (occurrence: US)
  Receive Date: 20200121
  Receipt Date: 20200121
  Transmission Date: 20200409
  Serious: Yes (Life-Threatening, Disabling)
  Sender: FDA-Public Use
  Company Number: None

PATIENT
  Age: 28 Year
  Sex: Female
  Weight: 67.5 kg

DRUGS (2)
  1. LUPRON [Suspect]
     Active Substance: LEUPROLIDE ACETATE
     Indication: ADENOMYOSIS
     Dosage: ?          OTHER FREQUENCY:MONTHLY INJECTION;OTHER ROUTE:INJECTION INTO MUSCLE LOCATED ON BUTTOCK?
     Dates: start: 20191126, end: 20191226
  2. LUPRON [Suspect]
     Active Substance: LEUPROLIDE ACETATE
     Indication: ENDOMETRIOSIS
     Dosage: ?          OTHER FREQUENCY:MONTHLY INJECTION;OTHER ROUTE:INJECTION INTO MUSCLE LOCATED ON BUTTOCK?
     Dates: start: 20191126, end: 20191226

REACTIONS (1)
  - Adverse drug reaction [None]

NARRATIVE: CASE EVENT DATE: 20191127
